FAERS Safety Report 24163854 (Version 1)
Quarter: 2024Q3

REPORT INFORMATION
  Report Type: Report from Study
  Country: US (occurrence: None)
  Receive Date: 20240801
  Receipt Date: 20240801
  Transmission Date: 20241016
  Serious: Yes (Other)
  Sender: ASTRAZENECA
  Company Number: 2024A170516

PATIENT

DRUGS (1)
  1. KOSELUGO [Suspect]
     Active Substance: SELUMETINIB
     Route: 048

REACTIONS (8)
  - Visual impairment [Unknown]
  - Cardiac disorder [Unknown]
  - Therapeutic product effect decreased [Unknown]
  - Rash [Unknown]
  - Dry skin [Unknown]
  - Gastrointestinal disorder [Unknown]
  - Dermatitis acneiform [Unknown]
  - Skin disorder [Unknown]
